FAERS Safety Report 5411241-9 (Version None)
Quarter: 2007Q3

REPORT INFORMATION
  Report Type: 
  Country: None (occurrence: None)
  Receive Date: 20070810
  Receipt Date: 20070807
  Transmission Date: 20080115
  Serious: Yes (Other)
  Sender: FDA-Public Use
  Company Number: B0482718A

PATIENT
  Sex: Female

DRUGS (2)
  1. LAMICTAL [Suspect]
     Indication: EPILEPSY
     Dosage: 50MG TWICE PER DAY
     Route: 048
  2. KEPPRA [Concomitant]

REACTIONS (4)
  - FATIGUE [None]
  - HALLUCINATION [None]
  - RAYNAUD'S PHENOMENON [None]
  - TENDONITIS [None]
